FAERS Safety Report 20327204 (Version 1)
Quarter: 2022Q1

REPORT INFORMATION
  Report Type: Spontaneous
  Country: US (occurrence: US)
  Receive Date: 20220112
  Receipt Date: 20220112
  Transmission Date: 20220423
  Serious: No
  Sender: FDA-Public Use
  Company Number: US-SUN PHARMACEUTICAL INDUSTRIES LTD-2020R1-272412

PATIENT
  Sex: Female

DRUGS (1)
  1. AMINOLEVULINIC ACID [Suspect]
     Active Substance: AMINOLEVULINIC ACID
     Indication: Actinic keratosis
     Dosage: APPLY TO THE ARMS AND LEGS 2 HOURS PRIOR TO TREATMENT. TREATMENTS ARE 2 MONTHS APART
     Route: 065

REACTIONS (1)
  - Hypersensitivity [Unknown]
